FAERS Safety Report 5690949-4 (Version None)
Quarter: 2008Q2

REPORT INFORMATION
  Report Type: 
  Country: None (occurrence: None)
  Receive Date: 20080401
  Receipt Date: 20080324
  Transmission Date: 20081010
  Serious: Yes (Death)
  Sender: FDA-Public Use
  Company Number: TR-ELI_LILLY_AND_COMPANY-TR200803005450

PATIENT
  Sex: Male

DRUGS (1)
  1. HUMULIN 70/30 [Suspect]
     Dosage: UNK, UNKNOWN
     Route: 058
     Dates: start: 20040101

REACTIONS (2)
  - BLOOD GLUCOSE INCREASED [None]
  - CARDIAC FAILURE [None]
